FAERS Safety Report 5524106-9 (Version None)
Quarter: 2007Q4

REPORT INFORMATION
  Report Type: 
  Country: None (occurrence: None)
  Receive Date: 20071121
  Receipt Date: 20071112
  Transmission Date: 20080405
  Serious: Yes (Other)
  Sender: FDA-Public Use
  Company Number: DE-GENENTECH-246066

PATIENT
  Age: 70 Year
  Sex: Female

DRUGS (3)
  1. LUCENTIS [Suspect]
     Indication: MACULAR DEGENERATION
     Dosage: 1 DF, 1/MONTH
     Route: 031
     Dates: start: 20070401, end: 20070601
  2. FENISTIL [Concomitant]
     Indication: DRUG USE FOR UNKNOWN INDICATION
  3. ANTIHYPERTENSIVES [Concomitant]
     Indication: HYPERTENSION

REACTIONS (3)
  - ALLERGY TO CHEMICALS [None]
  - PRURITUS GENERALISED [None]
  - VITREOUS FLOATERS [None]
